FAERS Safety Report 17043559 (Version 1)
Quarter: 2019Q4

REPORT INFORMATION
  Report Type: Spontaneous
  Country: JP (occurrence: JP)
  Receive Date: 20191118
  Receipt Date: 20191118
  Transmission Date: 20200122
  Serious: Yes (Death, Hospitalization)
  Sender: FDA-Public Use
  Company Number: JP-ACTELION-A-CH2019-198115

PATIENT
  Age: 22 Month
  Sex: Female

DRUGS (6)
  1. HYDROXYCHLOROQUINE [Concomitant]
     Active Substance: HYDROXYCHLOROQUINE
  2. PALIVIZUMAB [Concomitant]
     Active Substance: PALIVIZUMAB
  3. OPSUMIT [Suspect]
     Active Substance: MACITENTAN
     Indication: INTERSTITIAL LUNG DISEASE
     Route: 048
  4. MUCOFILIN [Concomitant]
  5. SILDENAFIL. [Concomitant]
     Active Substance: SILDENAFIL
  6. CLARITHROMYCIN. [Concomitant]
     Active Substance: CLARITHROMYCIN

REACTIONS (4)
  - Lung transplant [Unknown]
  - Hyperthermia [Unknown]
  - Cardiac arrest [Fatal]
  - Metabolic acidosis [Unknown]
